FAERS Safety Report 14054213 (Version 1)
Quarter: 2017Q4

REPORT INFORMATION
  Report Type: Spontaneous
  Country: US (occurrence: US)
  Receive Date: 20171006
  Receipt Date: 20171006
  Transmission Date: 20180321
  Serious: No
  Sender: FDA-Public Use
  Company Number: US-JNJFOC-20170810123

PATIENT

DRUGS (2)
  1. MINOXIDIL. [Suspect]
     Active Substance: MINOXIDIL
     Route: 061
  2. MINOXIDIL. [Suspect]
     Active Substance: MINOXIDIL
     Indication: PRODUCT USED FOR UNKNOWN INDICATION
     Dosage: LITTLE OVER A MONTH
     Route: 061

REACTIONS (5)
  - Skin discolouration [Unknown]
  - Ear swelling [Unknown]
  - Erythema [Unknown]
  - Fatigue [Unknown]
  - Skin disorder [Unknown]
